FAERS Safety Report 18749751 (Version 1)
Quarter: 2021Q1

REPORT INFORMATION
  Report Type: Spontaneous
  Country: US (occurrence: US)
  Receive Date: 20210117
  Receipt Date: 20210117
  Transmission Date: 20210419
  Serious: No
  Sender: FDA-Public Use
  Company Number: US-ASTRAZENECA-2021A002336

PATIENT
  Sex: Female
  Weight: 78 kg

DRUGS (9)
  1. RAMIPRIL. [Concomitant]
     Active Substance: RAMIPRIL
  2. FISH OIL [Concomitant]
     Active Substance: FISH OIL
  3. LORAZEPAM. [Concomitant]
     Active Substance: LORAZEPAM
  4. BYDUREON BCISE [Suspect]
     Active Substance: EXENATIDE
     Indication: TYPE 2 DIABETES MELLITUS
     Route: 058
     Dates: start: 20201203
  5. TRISEBA [Concomitant]
  6. MELATONIN [Concomitant]
     Active Substance: MELATONIN
  7. SIMVASTATIN. [Concomitant]
     Active Substance: SIMVASTATIN
  8. OMEPRAZOLE. [Suspect]
     Active Substance: OMEPRAZOLE
     Dosage: UNKNOWN
     Route: 048
  9. MELOXICAM. [Concomitant]
     Active Substance: MELOXICAM

REACTIONS (4)
  - Injection site nodule [Not Recovered/Not Resolved]
  - Injection site pain [Recovering/Resolving]
  - Peau d^orange [Unknown]
  - Nausea [Recovering/Resolving]
